FAERS Safety Report 7919824-9 (Version None)
Quarter: 2011Q4

REPORT INFORMATION
  Report Type: 
  Country: None (occurrence: None)
  Receive Date: 20111117
  Receipt Date: 20111117
  Transmission Date: 20120403
  Serious: Yes (Life-Threatening, Hospitalization)
  Sender: FDA-Public Use
  Company Number: None

PATIENT
  Age: 82 Year
  Sex: Male
  Weight: 70.306 kg

DRUGS (1)
  1. DESMOPRESSIN ACETATE [Suspect]
     Indication: CARDIAC FAILURE CONGESTIVE
     Dosage: 0.3MG/KG
     Route: 042
     Dates: start: 20110912, end: 20110914

REACTIONS (3)
  - DYSPNOEA [None]
  - OXYGEN SATURATION DECREASED [None]
  - NAUSEA [None]
